FAERS Safety Report 4637957-X (Version None)
Quarter: 2005Q2

REPORT INFORMATION
  Report Type: 
  Country: None (occurrence: None)
  Receive Date: 20050415
  Receipt Date: 20050405
  Transmission Date: 20051028
  Serious: Yes (Hospitalization)
  Sender: FDA-Public Use
  Company Number: 2005AP01773

PATIENT
  Age: 54 Year
  Sex: Male
  Weight: 88.6 kg

DRUGS (14)
  1. DIPRIVAN [Suspect]
     Indication: POSTOPERATIVE CARE
     Dosage: 14540 MG DAILY IVD
     Route: 041
     Dates: start: 20050214, end: 20050218
  2. DIPRIVAN [Suspect]
     Indication: SEDATION
     Dosage: 14540 MG DAILY IVD
     Route: 041
     Dates: start: 20050214, end: 20050218
  3. DIPRIVAN [Suspect]
     Indication: POSTOPERATIVE CARE
     Dosage: 3590 MG DAILY IVD
     Route: 041
     Dates: start: 20050221, end: 20050223
  4. DIPRIVAN [Suspect]
     Indication: SEDATION
     Dosage: 3590 MG DAILY IVD
     Route: 041
     Dates: start: 20050221, end: 20050223
  5. WARFARIN [Concomitant]
  6. ARTIST [Concomitant]
  7. METILON [Concomitant]
  8. ACECOL [Concomitant]
  9. AMLODIN [Concomitant]
  10. OPALMON [Concomitant]
  11. GLUCOBAY [Concomitant]
  12. LENDORM [Concomitant]
  13. NITRODERM [Concomitant]
  14. HUMACART-N [Concomitant]

REACTIONS (6)
  - CARDIAC FAILURE [None]
  - CENTRAL VENOUS PRESSURE INCREASED [None]
  - HYPERTHERMIA MALIGNANT [None]
  - MYOCARDIAL ISCHAEMIA [None]
  - POST PROCEDURAL COMPLICATION [None]
  - PULMONARY ARTERIAL WEDGE PRESSURE INCREASED [None]
